FAERS Safety Report 13788238 (Version 1)
Quarter: 2017Q3

REPORT INFORMATION
  Report Type: Spontaneous
  Country: US (occurrence: US)
  Receive Date: 20170725
  Receipt Date: 20170725
  Transmission Date: 20171127
  Serious: No
  Sender: FDA-Public Use
  Company Number: US-STRIDES ARCOLAB LIMITED-2017SP008254

PATIENT

DRUGS (3)
  1. METHYLPREDISOLONE [Concomitant]
     Active Substance: METHYLPREDNISOLONE
     Indication: MYELITIS
     Dosage: UNK, UNKNOWN
     Route: 042
  2. AZATHIOPRINE. [Concomitant]
     Active Substance: AZATHIOPRINE
     Indication: MYELITIS
     Dosage: UNK
     Route: 065
  3. MYCOPHENOLATE MOFETIL. [Suspect]
     Active Substance: MYCOPHENOLATE MOFETIL
     Indication: MYELITIS
     Dosage: UNK, UNKNOWN
     Route: 065

REACTIONS (1)
  - Off label use [Unknown]
